FAERS Safety Report 14313341 (Version 3)
Quarter: 2018Q3

REPORT INFORMATION
  Report Type: Spontaneous
  Country: US (occurrence: US)
  Receive Date: 20171221
  Receipt Date: 20180907
  Transmission Date: 20181010
  Serious: Yes (Other)
  Sender: FDA-Public Use
  Company Number: US-BAYER-2017-244483

PATIENT
  Age: 20 Year
  Sex: Female
  Weight: 77.56 kg

DRUGS (1)
  1. KYLEENA [Suspect]
     Active Substance: LEVONORGESTREL
     Indication: CONTRACEPTION
     Dosage: 17.5 MCG/24HR, CONT
     Route: 015
     Dates: start: 20170428

REACTIONS (4)
  - Drug ineffective [None]
  - Device difficult to use [None]
  - Device expulsion [None]
  - Pregnancy with contraceptive device [None]

NARRATIVE: CASE EVENT DATE: 2017
